FAERS Safety Report 15887235 (Version 1)
Quarter: 2019Q1

REPORT INFORMATION
  Report Type: Spontaneous
  Country: US (occurrence: US)
  Receive Date: 20190130
  Receipt Date: 20190130
  Transmission Date: 20190417
  Serious: Yes (Other)
  Sender: FDA-Public Use
  Company Number: US-ROCHE-2252555

PATIENT
  Sex: Female

DRUGS (1)
  1. XELODA [Suspect]
     Active Substance: CAPECITABINE
     Indication: PRODUCT USED FOR UNKNOWN INDICATION
     Route: 065

REACTIONS (7)
  - Osteonecrosis of jaw [Unknown]
  - Pulmonary embolism [Unknown]
  - Cholecystitis [Unknown]
  - Pleural effusion [Unknown]
  - Gastric ulcer [Unknown]
  - Breast cancer metastatic [Unknown]
  - Pharyngitis streptococcal [Unknown]
